FAERS Safety Report 16085136 (Version 1)
Quarter: 2019Q1

REPORT INFORMATION
  Report Type: Spontaneous
  Country: US (occurrence: US)
  Receive Date: 20190318
  Receipt Date: 20190318
  Transmission Date: 20190418
  Serious: Yes (Hospitalization, Other)
  Sender: FDA-Public Use
  Company Number: US-BIOMARINAP-US-2019-122363

PATIENT
  Age: 15 Year
  Sex: Female

DRUGS (1)
  1. VIMIZIM [Suspect]
     Active Substance: ELOSULFASE ALFA
     Indication: MUCOPOLYSACCHARIDOSIS IV
     Dosage: 60 MILLIGRAM, QW
     Route: 042
     Dates: start: 20140509

REACTIONS (7)
  - Wheezing [Unknown]
  - Heart rate increased [Unknown]
  - Dyspnoea [Unknown]
  - Pneumonia [Unknown]
  - Chest discomfort [Unknown]
  - Anxiety [Unknown]
  - Pyrexia [Unknown]

NARRATIVE: CASE EVENT DATE: 20190309
